FAERS Safety Report 9966609 (Version 2)
Quarter: 2014Q1

REPORT INFORMATION
  Report Type: Report from Study
  Country: US (occurrence: US)
  Receive Date: 20140305
  Receipt Date: 20140305
  Transmission Date: 20141002
  Serious: No
  Sender: FDA-Public Use
  Company Number: US-ABBVIE-13P-163-1058582-00

PATIENT
  Age: 22 Year
  Sex: Female
  Weight: 68.1 kg

DRUGS (3)
  1. HUMIRA 40MG/0.4ML [Suspect]
     Indication: ANKYLOSING SPONDYLITIS
     Dates: start: 20121023, end: 20130304
  2. IUD [Concomitant]
     Indication: PRODUCT USED FOR UNKNOWN INDICATION
  3. IBUPROFEN [Concomitant]
     Indication: PRODUCT USED FOR UNKNOWN INDICATION

REACTIONS (7)
  - Hunger [Not Recovered/Not Resolved]
  - Coeliac disease [Not Recovered/Not Resolved]
  - Arthropathy [Not Recovered/Not Resolved]
  - Arthralgia [Not Recovered/Not Resolved]
  - Vomiting [Not Recovered/Not Resolved]
  - Fatigue [Not Recovered/Not Resolved]
  - Gait disturbance [Not Recovered/Not Resolved]
